FAERS Safety Report 22653091 (Version 1)
Quarter: 2023Q2

REPORT INFORMATION
  Report Type: Spontaneous
  Country: DE (occurrence: DE)
  Receive Date: 20230629
  Receipt Date: 20230629
  Transmission Date: 20230722
  Serious: Yes (Other)
  Sender: FDA-Public Use
  Company Number: DE-002147023-NVSC2023DE138453

PATIENT

DRUGS (15)
  1. BEVACIZUMAB [Suspect]
     Active Substance: BEVACIZUMAB
     Indication: Adenocarcinoma
     Route: 065
     Dates: start: 201112, end: 201307
  2. BEVACIZUMAB [Suspect]
     Active Substance: BEVACIZUMAB
     Indication: Pleural neoplasm
     Route: 065
     Dates: start: 201008, end: 201101
  3. BEVACIZUMAB [Suspect]
     Active Substance: BEVACIZUMAB
     Indication: Lymphangiosis carcinomatosa
  4. BEVACIZUMAB [Suspect]
     Active Substance: BEVACIZUMAB
     Indication: Bronchial carcinoma
  5. BEVACIZUMAB [Suspect]
     Active Substance: BEVACIZUMAB
     Indication: Malignant peritoneal neoplasm
  6. GEMCITABINE [Suspect]
     Active Substance: GEMCITABINE
     Indication: Pleural neoplasm
     Dosage: UNK
     Route: 065
     Dates: start: 201112, end: 201204
  7. GEMCITABINE [Suspect]
     Active Substance: GEMCITABINE
     Indication: Lymphangiosis carcinomatosa
     Dosage: UNK
     Route: 065
     Dates: start: 201008, end: 201101
  8. GEMCITABINE [Suspect]
     Active Substance: GEMCITABINE
     Indication: Adenocarcinoma
     Dosage: UNK
     Route: 065
     Dates: start: 201302, end: 201307
  9. GEMCITABINE [Suspect]
     Active Substance: GEMCITABINE
     Indication: Malignant peritoneal neoplasm
     Dosage: UNK
     Route: 065
     Dates: start: 201104, end: 201109
  10. GEMCITABINE [Suspect]
     Active Substance: GEMCITABINE
     Indication: Bronchial carcinoma
  11. CARBOPLATIN [Suspect]
     Active Substance: CARBOPLATIN
     Indication: Pleural neoplasm
     Dosage: UNK
     Route: 065
     Dates: start: 201008, end: 201101
  12. CARBOPLATIN [Suspect]
     Active Substance: CARBOPLATIN
     Indication: Malignant peritoneal neoplasm
     Dosage: UNK
     Route: 065
     Dates: start: 201302, end: 201307
  13. CARBOPLATIN [Suspect]
     Active Substance: CARBOPLATIN
     Indication: Adenocarcinoma
     Route: 065
     Dates: start: 201112, end: 201204
  14. CARBOPLATIN [Suspect]
     Active Substance: CARBOPLATIN
     Indication: Lymphangiosis carcinomatosa
  15. CARBOPLATIN [Suspect]
     Active Substance: CARBOPLATIN
     Indication: Bronchial carcinoma

REACTIONS (9)
  - Lymphangiosis carcinomatosa [Unknown]
  - Malignant neoplasm progression [Unknown]
  - Adenocarcinoma [Unknown]
  - Metastases to peritoneum [Unknown]
  - Lung neoplasm malignant [Unknown]
  - Metastases to lung [Unknown]
  - Bronchial carcinoma [Unknown]
  - Pleural neoplasm [Unknown]
  - Off label use [Unknown]

NARRATIVE: CASE EVENT DATE: 20110401
